FAERS Safety Report 5658717-7 (Version None)
Quarter: 2008Q1

REPORT INFORMATION
  Report Type: 
  Country: None (occurrence: None)
  Receive Date: 20080310
  Receipt Date: 20070402
  Transmission Date: 20080703
  Serious: No
  Sender: FDA-Public Use
  Company Number: US-BAYER-200711002BCC

PATIENT
  Age: 59 Year
  Sex: Female
  Weight: 77 kg

DRUGS (7)
  1. ALEVE [Suspect]
     Indication: PAIN
     Dosage: UNIT DOSE: 220 MG
     Route: 048
     Dates: start: 19990101
  2. LIBRIUM [Concomitant]
  3. PEPCID [Concomitant]
  4. ZOLOFT [Concomitant]
  5. ZYRTEC [Concomitant]
  6. ELAVIL [Concomitant]
  7. UNKNOWN CHOLESTEROL MEDICATION [Concomitant]

REACTIONS (1)
  - VISION BLURRED [None]
